FAERS Safety Report 8237909-7 (Version None)
Quarter: 2012Q1

REPORT INFORMATION
  Report Type: 
  Country: None (occurrence: None)
  Receive Date: 20120327
  Receipt Date: 20120321
  Transmission Date: 20120608
  Serious: Yes (Other)
  Sender: FDA-Public Use
  Company Number: US-PFIZER INC-2012074395

PATIENT
  Sex: Male
  Weight: 70.295 kg

DRUGS (6)
  1. PREDNISONE [Concomitant]
     Dosage: UNK
  2. LYRICA [Suspect]
     Indication: NEUROPATHY PERIPHERAL
     Dosage: 150 MG, 2X/DAY
     Route: 048
     Dates: start: 20100101
  3. COUMADIN [Concomitant]
     Dosage: UNK
  4. LYRICA [Suspect]
     Indication: RHEUMATOID ARTHRITIS
  5. SOMA [Concomitant]
     Dosage: UNK
  6. MELOXICAM [Concomitant]
     Dosage: UNK

REACTIONS (6)
  - AMPUTATION [None]
  - OSTEOPENIA [None]
  - RHEUMATOID ARTHRITIS [None]
  - ARTHRALGIA [None]
  - PAIN [None]
  - MYALGIA [None]
